FAERS Safety Report 15518149 (Version 1)
Quarter: 2018Q4

REPORT INFORMATION
  Report Type: Spontaneous
  Country: FR (occurrence: FR)
  Receive Date: 20181017
  Receipt Date: 20181017
  Transmission Date: 20190205
  Serious: Yes (Hospitalization)
  Sender: FDA-Public Use
  Company Number: FR-TEVA-2018-FR-964753

PATIENT
  Age: 33 Year
  Sex: Male

DRUGS (8)
  1. MDMA [Suspect]
     Active Substance: MIDOMAFETAMINE
     Indication: DRUG ABUSE
     Dosage: NOT INFORMED
     Route: 065
     Dates: start: 2015, end: 2015
  2. BUPRENORPHINE. [Suspect]
     Active Substance: BUPRENORPHINE
     Indication: PRODUCT USED FOR UNKNOWN INDICATION
     Dosage: NOT INFORMED
     Route: 065
     Dates: start: 2010
  3. CANNABIS ET RESINE [Suspect]
     Active Substance: CANNABIS SATIVA SUBSP. INDICA TOP
     Indication: DRUG ABUSE
     Dosage: 2-3 JOINTS/JOUR
     Route: 055
     Dates: end: 2004
  4. TABAC (POUDRE DE) [Suspect]
     Active Substance: TOBACCO LEAF
     Indication: TOBACCO USER
     Dosage: 20 CIG/DAY
     Route: 055
     Dates: start: 1997
  5. ALCOOL [Suspect]
     Active Substance: ALCOHOL
     Indication: ALCOHOL ABUSE
     Dosage: 27 U/DAY
     Route: 048
     Dates: start: 1994
  6. HEROIN [Suspect]
     Active Substance: DIAMORPHINE
     Indication: DRUG DEPENDENCE
     Dosage: NOT INFORMED
     Route: 045
     Dates: start: 2004, end: 2010
  7. LSD 25 [Suspect]
     Active Substance: LYSERGIDE
     Indication: DRUG ABUSE
     Dosage: NOT INFORMED
     Route: 065
     Dates: start: 2015, end: 2015
  8. COCAINE [Suspect]
     Active Substance: COCAINE
     Indication: DRUG ABUSE
     Dosage: NOT INFORMED
     Route: 065
     Dates: start: 2015, end: 2015

REACTIONS (4)
  - Drug abuse [Recovered/Resolved]
  - Drug abuse [Recovering/Resolving]
  - Intentional product misuse [Recovered/Resolved]
  - Alcohol abuse [Recovering/Resolving]
